FAERS Safety Report 5318055-9 (Version None)
Quarter: 2007Q1

REPORT INFORMATION
  Report Type: 
  Country: None (occurrence: None)
  Receive Date: 20070205
  Receipt Date: 20061108
  Transmission Date: 20070707
  Serious: Yes (Other)
  Sender: FDA-Public Use
  Company Number: CLOF-10374

PATIENT
  Age: 81 Year
  Weight: 70 kg

DRUGS (1)
  1. CLOLAR [Suspect]
     Indication: ACUTE MYELOID LEUKAEMIA
     Dosage: 45 MG QD IV
     Route: 042
     Dates: start: 20061105

REACTIONS (1)
  - BACK PAIN [None]
